FAERS Safety Report 7262213-3 (Version None)
Quarter: 2011Q1

REPORT INFORMATION
  Report Type: 
  Country: None (occurrence: None)
  Receive Date: 20110130
  Receipt Date: 20101111
  Transmission Date: 20110831
  Serious: No
  Sender: FDA-Public Use
  Company Number: US-ABBOTT-10P-163-0685374-00

PATIENT
  Sex: Female
  Weight: 70.37 kg

DRUGS (4)
  1. APRISO [Concomitant]
     Indication: CROHN'S DISEASE
  2. IMURAN [Concomitant]
     Indication: CROHN'S DISEASE
  3. ALLEGRA [Concomitant]
     Indication: HYPERSENSITIVITY
  4. HUMIRA [Suspect]
     Indication: CROHN'S DISEASE
     Dates: start: 20090401, end: 20100901

REACTIONS (1)
  - HERPES ZOSTER [None]
